FAERS Safety Report 6296406-9 (Version None)
Quarter: 2009Q3

REPORT INFORMATION
  Report Type: 
  Country: None (occurrence: None)
  Receive Date: 20090803
  Receipt Date: 20090803
  Transmission Date: 20100115
  Serious: Yes (Life-Threatening, Hospitalization)
  Sender: FDA-Public Use
  Company Number: None

PATIENT
  Age: 79 Year
  Sex: Male
  Weight: 68.0396 kg

DRUGS (2)
  1. HUMIRA [Suspect]
     Indication: RHEUMATOID ARTHRITIS
     Dosage: 40 MG WEEKLY SQ
     Route: 058
     Dates: start: 20080501, end: 20081001
  2. IMMUNOSUPPRESSION [Concomitant]

REACTIONS (3)
  - BASAL CELL CARCINOMA [None]
  - MALIGNANT MELANOMA [None]
  - SQUAMOUS CELL CARCINOMA OF SKIN [None]
